FAERS Safety Report 15925654 (Version 3)
Quarter: 2019Q1

REPORT INFORMATION
  Report Type: Spontaneous
  Country: IL (occurrence: IL)
  Receive Date: 20190206
  Receipt Date: 20190219
  Transmission Date: 20190417
  Serious: Yes (Other)
  Sender: FDA-Public Use
  Company Number: IL-SA-2019SA023803

PATIENT
  Age: 72 Year
  Sex: Male

DRUGS (9)
  1. KEVZARA [Suspect]
     Active Substance: SARILUMAB
     Indication: RHEUMATOID ARTHRITIS
     Dosage: UNK
     Route: 058
     Dates: start: 20181225
  2. ARAVA [Concomitant]
     Active Substance: LEFLUNOMIDE
  3. PREDNISON [Concomitant]
     Active Substance: PREDNISONE
  4. GLUCOMIN [Concomitant]
     Active Substance: METFORMIN HYDROCHLORIDE
     Indication: DIABETES MELLITUS
  5. SIMVAXON [Concomitant]
  6. KEVZARA [Suspect]
     Active Substance: SARILUMAB
     Dosage: 200 MG, QOW
     Route: 058
     Dates: start: 20190130
  7. METHOTREXATE. [Concomitant]
     Active Substance: METHOTREXATE
  8. OMNIC [Concomitant]
     Active Substance: TAMSULOSIN HYDROCHLORIDE
  9. OMEPRADEX [Concomitant]
     Active Substance: OMEPRAZOLE

REACTIONS (3)
  - Pain in extremity [Unknown]
  - Neutrophil count abnormal [Recovered/Resolved]
  - Neutrophil count decreased [Recovered/Resolved]

NARRATIVE: CASE EVENT DATE: 20190129
